FAERS Safety Report 8044609-5 (Version None)
Quarter: 2012Q1

REPORT INFORMATION
  Report Type: 
  Country: None (occurrence: None)
  Receive Date: 20120113
  Receipt Date: 20120113
  Transmission Date: 20120608
  Serious: Yes (Other)
  Sender: FDA-Public Use
  Company Number: None

PATIENT
  Age: 50 Year
  Sex: Male
  Weight: 111.13 kg

DRUGS (1)
  1. LIPITOR [Suspect]
     Dosage: 1
     Dates: start: 20111110, end: 20111212

REACTIONS (2)
  - MUSCLE SPASMS [None]
  - INSOMNIA [None]
